FAERS Safety Report 8813113 (Version 2)
Quarter: 2013Q1

REPORT INFORMATION
  Report Type: Spontaneous
  Country: US (occurrence: US)
  Receive Date: 20120927
  Receipt Date: 20130122
  Transmission Date: 20140127
  Serious: Yes (Other)
  Sender: FDA-Public Use
  Company Number: US-AMGEN-USASP2012052302

PATIENT
  Age: 86 Year
  Sex: Female

DRUGS (14)
  1. PROLIA [Suspect]
     Indication: OSTEOPOROSIS POSTMENOPAUSAL
     Dosage: 60 MG, Q6MO
     Dates: start: 201207
  2. PROLIA [Suspect]
  3. HYDROCHLOROTHIAZIDE [Concomitant]
  4. ASPIRIN [Concomitant]
  5. LEVOTHYROXINE [Concomitant]
  6. LOSARTAN [Concomitant]
     Dates: end: 201208
  7. DIOVAN [Concomitant]
  8. PLAVIX [Concomitant]
  9. TEMAZEPAM [Concomitant]
  10. LIPITOR [Concomitant]
  11. VESICARE [Concomitant]
  12. METFORMIN [Concomitant]
  13. NEXIUM                             /01479302/ [Concomitant]
  14. CALTRATE                           /00944201/ [Concomitant]
     Dosage: UNK
     Dates: start: 2012

REACTIONS (9)
  - Activities of daily living impaired [Not Recovered/Not Resolved]
  - Asthenia [Not Recovered/Not Resolved]
  - Arthralgia [Not Recovered/Not Resolved]
  - Malaise [Not Recovered/Not Resolved]
  - Pain [Not Recovered/Not Resolved]
  - Musculoskeletal pain [Not Recovered/Not Resolved]
  - Bone pain [Not Recovered/Not Resolved]
  - Back pain [Not Recovered/Not Resolved]
  - Pain in extremity [Not Recovered/Not Resolved]
